FAERS Safety Report 7413437-3 (Version None)
Quarter: 2011Q2

REPORT INFORMATION
  Report Type: 
  Country: None (occurrence: None)
  Receive Date: 20110413
  Receipt Date: 20110401
  Transmission Date: 20111010
  Serious: Yes (Other)
  Sender: FDA-Public Use
  Company Number: PHHY2011US23286

PATIENT
  Sex: Male

DRUGS (3)
  1. GILENYA [Suspect]
     Indication: MULTIPLE SCLEROSIS
     Dosage: 0.5 MG, QD
     Route: 048
     Dates: start: 20110121, end: 20110319
  2. OXYCODONE [Concomitant]
     Dosage: UNK
  3. VITAMIN D [Concomitant]
     Indication: VITAMIN D DEFICIENCY
     Dosage: 1000 IU, UNK
     Dates: start: 20101001

REACTIONS (3)
  - VISUAL ACUITY REDUCED [None]
  - OPTIC ATROPHY [None]
  - VISION BLURRED [None]
